FAERS Safety Report 11200703 (Version 1)
Quarter: 2015Q2

REPORT INFORMATION
  Report Type: Spontaneous
  Country: US (occurrence: US)
  Receive Date: 20150618
  Receipt Date: 20150618
  Transmission Date: 20150821
  Serious: Yes (Hospitalization)
  Sender: FDA-Public Use
  Company Number: US-ABBVIE-15P-163-1408853-00

PATIENT
  Sex: Male
  Weight: 82.63 kg

DRUGS (7)
  1. WELLBUTRIN [Concomitant]
     Active Substance: BUPROPION HYDROCHLORIDE
     Indication: PRODUCT USED FOR UNKNOWN INDICATION
     Route: 065
  2. PREZISTA [Concomitant]
     Active Substance: DARUNAVIR ETHANOLATE
     Indication: HIV TEST POSITIVE
     Route: 065
  3. NORVIR [Concomitant]
     Active Substance: RITONAVIR
     Indication: HIV TEST POSITIVE
     Route: 065
  4. ANDROGEL [Suspect]
     Active Substance: TESTOSTERONE
     Indication: BLOOD TESTOSTERONE DECREASED
     Dosage: 2 PUMPS PER DAY
     Route: 065
     Dates: start: 2011, end: 2012
  5. ANDROGEL [Suspect]
     Active Substance: TESTOSTERONE
     Dosage: 4 PUMPS PER DAY
     Route: 065
     Dates: start: 2012
  6. INTELENCE [Concomitant]
     Active Substance: ETRAVIRINE
     Indication: HIV TEST POSITIVE
     Route: 065
  7. ISENTRESS [Concomitant]
     Active Substance: RALTEGRAVIR POTASSIUM
     Indication: HIV TEST POSITIVE
     Route: 065

REACTIONS (3)
  - Osteoarthritis [Recovering/Resolving]
  - Necrosis ischaemic [Recovering/Resolving]
  - Drug effect incomplete [Recovered/Resolved]

NARRATIVE: CASE EVENT DATE: 2011
